FAERS Safety Report 8384833-5 (Version None)
Quarter: 2012Q2

REPORT INFORMATION
  Report Type: 
  Country: None (occurrence: None)
  Receive Date: 20120524
  Receipt Date: 20120516
  Transmission Date: 20120825
  Serious: Yes (Death)
  Sender: FDA-Public Use
  Company Number: US-CELGENEUS-131-21880-12050903

PATIENT
  Sex: Male
  Weight: 72.64 kg

DRUGS (14)
  1. OXALIPLATIN [Suspect]
     Indication: NON-HODGKIN'S LYMPHOMA
     Dosage: 100 MILLIGRAM/SQ. METER
     Route: 041
     Dates: start: 20120503
  2. REVLIMID [Suspect]
     Indication: NON-HODGKIN'S LYMPHOMA
     Route: 048
  3. COZAAR [Concomitant]
     Dosage: 50 MILLIGRAM
     Route: 048
  4. GLUCOPHAGE [Concomitant]
     Dosage: 500 MILLIGRAM
     Route: 048
  5. GEMCITABINE [Suspect]
     Indication: NON-HODGKIN'S LYMPHOMA
     Dosage: 1250 MILLIGRAM/SQ. METER
     Route: 041
     Dates: start: 20120503
  6. AVODART [Concomitant]
     Dosage: .5 MILLIGRAM
     Route: 048
  7. CLARITIN [Concomitant]
     Dosage: 10 MILLIGRAM
     Route: 048
  8. PROTECT PLUS [Concomitant]
     Dosage: 500 MILLIGRAM
     Route: 048
  9. RITUXAN [Suspect]
     Indication: NON-HODGKIN'S LYMPHOMA
     Dosage: 375 MILLIGRAM/SQ. METER
     Route: 041
     Dates: start: 20120502
  10. ATROVENT [Concomitant]
     Dosage: .06 PERCENT
     Route: 055
  11. FLOMAX [Concomitant]
     Dosage: .4 MILLIGRAM
     Route: 048
  12. DURAGESIC-100 [Concomitant]
     Dosage: 75 MICROGRAM
     Route: 065
  13. LISINOPRIL [Concomitant]
     Dosage: 10 MILLIGRAM
     Route: 048
  14. COREG [Concomitant]
     Dosage: 6.25 MILLIGRAM
     Route: 048

REACTIONS (1)
  - DEATH [None]
